FAERS Safety Report 21545591 (Version 2)
Quarter: 2022Q4

REPORT INFORMATION
  Report Type: Spontaneous
  Country: US (occurrence: US)
  Receive Date: 20221103
  Receipt Date: 20221206
  Transmission Date: 20230113
  Serious: Yes (Hospitalization)
  Sender: FDA-Public Use
  Company Number: US-JNJFOC-20221057853

PATIENT
  Age: 90 Year
  Sex: Female

DRUGS (12)
  1. XARELTO [Suspect]
     Active Substance: RIVAROXABAN
     Indication: Product used for unknown indication
     Route: 048
     Dates: start: 20220830
  2. ATORVASTATIN [Concomitant]
     Active Substance: ATORVASTATIN
     Indication: Cardiac disorder
  3. BAYER ASPIRIN [Concomitant]
     Active Substance: ASPIRIN
     Indication: Cardiac disorder
  4. PLAVIX [Concomitant]
     Active Substance: CLOPIDOGREL BISULFATE
     Indication: Cardiac disorder
  5. DIVALPROEX SODIUM [Concomitant]
     Active Substance: DIVALPROEX SODIUM
     Indication: Myoclonus
  6. ISOSORBIDE [Concomitant]
     Active Substance: ISOSORBIDE
  7. VERAPAMIL [Concomitant]
     Active Substance: VERAPAMIL HYDROCHLORIDE
     Indication: Blood pressure abnormal
  8. NITROGLYCERIN [Concomitant]
     Active Substance: NITROGLYCERIN
     Indication: Cardiac disorder
  9. COLACE [Concomitant]
     Active Substance: DOCUSATE SODIUM
     Indication: Abnormal faeces
  10. DOCUSATE [Concomitant]
     Active Substance: DOCUSATE
  11. VIT D [VITAMIN D NOS] [Concomitant]
  12. COVID-19 VACCINE [Concomitant]
     Indication: COVID-19 prophylaxis
     Dosage: 3 DOSES ON ARM
     Dates: start: 20220914

REACTIONS (6)
  - Mental impairment [Unknown]
  - Asthenia [Unknown]
  - Malaise [Unknown]
  - Pain [Unknown]
  - Hypersomnia [Unknown]
  - Decreased interest [Unknown]

NARRATIVE: CASE EVENT DATE: 20220101
